FAERS Safety Report 8502769 (Version 2)
Quarter: 2012Q4

REPORT INFORMATION
  Report Type: Report from Study
  Country: BR (occurrence: BR)
  Receive Date: 20120410
  Receipt Date: 20120910
  Transmission Date: 20130627
  Serious: Yes (Hospitalization)
  Sender: FDA-Public Use
  Company Number: BR-ROCHE-1054811

PATIENT
  Sex: Female
  Weight: 65 kg

DRUGS (14)
  1. MABTHERA [Suspect]
     Indication: RHEUMATOID ARTHRITIS
     Dosage: first infusion
     Route: 042
     Dates: start: 20110301
  2. MABTHERA [Suspect]
     Dosage: second infusion
     Route: 042
     Dates: start: 20120305
  3. MABTHERA [Suspect]
     Dosage: second infusion
     Route: 042
     Dates: start: 20120326
  4. METHOTREXATE [Concomitant]
  5. OMEPRAZOLE [Concomitant]
  6. ADALAT [Concomitant]
  7. LOSARTAN [Concomitant]
  8. PREDNISONE [Concomitant]
  9. MIOSAN [Concomitant]
  10. FOLIC ACID [Concomitant]
  11. CALCIUM CARBONATE [Concomitant]
  12. HYDROCHLOROTHIAZIDE [Concomitant]
  13. NIFEDINE (BRAZIL) [Concomitant]
  14. SIMVASTATIN [Concomitant]

REACTIONS (4)
  - Gastritis [Recovered/Resolved]
  - Arthritis [Not Recovered/Not Resolved]
  - Fatigue [Not Recovered/Not Resolved]
  - Blood cholesterol increased [Unknown]
